FAERS Safety Report 14453363 (Version 1)
Quarter: 2018Q1

REPORT INFORMATION
  Report Type: Spontaneous
  Country: US (occurrence: US)
  Receive Date: 20180127
  Receipt Date: 20180127
  Transmission Date: 20180509
  Serious: Yes (Other)
  Sender: FDA-Public Use
  Company Number: None

PATIENT
  Age: 64 Year
  Sex: Female
  Weight: 136.8 kg

DRUGS (27)
  1. BYETTA [Concomitant]
     Active Substance: EXENATIDE
  2. EZETIMBE [Concomitant]
     Active Substance: EZETIMIBE
  3. VITAMIN D [Concomitant]
     Active Substance: CHOLECALCIFEROL
  4. SILVER SULFADIAZINE. [Concomitant]
     Active Substance: SILVER SULFADIAZINE
  5. ROSEMARY OIL [Concomitant]
  6. PEAR SOAP [Concomitant]
  7. ORANGE OIL. [Concomitant]
     Active Substance: ORANGE OIL
  8. ELECTRIC HEAVY DUTY WHEELCHAIR [Concomitant]
  9. QUINAPRILL [Concomitant]
  10. COCONUT OIL [Concomitant]
     Active Substance: COCONUT OIL
  11. CASTELLANI PAINT [Suspect]
     Active Substance: PHENOL
     Indication: FUNGAL INFECTION
     Dosage: TOPICAL; 5 DROP(S)
     Route: 061
     Dates: start: 20180123, end: 20180127
  12. CANES [Concomitant]
  13. MEDICAL TABLE [Concomitant]
  14. DERMAREST SHAMPOO [Concomitant]
  15. BARIARTIC ROLLATOR [Concomitant]
  16. CPAP MACHINE [Concomitant]
  17. MEDICAL BED [Concomitant]
  18. COSOPT PF [Concomitant]
     Active Substance: DORZOLAMIDE HYDROCHLORIDE\TIMOLOL MALEATE
  19. ASPIRIN. [Concomitant]
     Active Substance: ASPIRIN
  20. ALOE VERA GEL [Concomitant]
     Active Substance: ALOE VERA LEAF
  21. METFORMIN [Concomitant]
     Active Substance: METFORMIN HYDROCHLORIDE
  22. THYME OIL [Concomitant]
     Active Substance: THYME
  23. BASAGLAR [Concomitant]
     Active Substance: INSULIN GLARGINE
  24. NYSTATIN. [Concomitant]
     Active Substance: NYSTATIN
  25. HUMIRA [Concomitant]
     Active Substance: ADALIMUMAB
  26. FLUTACASONE PROPITIONATE [Concomitant]
  27. LAVENDER OIL [Concomitant]
     Active Substance: LAVENDER OIL

REACTIONS (3)
  - Ulcer haemorrhage [None]
  - Skin atrophy [None]
  - Skin ulcer [None]

NARRATIVE: CASE EVENT DATE: 20180124
